FAERS Safety Report 5308404-X (Version None)
Quarter: 2007Q2

REPORT INFORMATION
  Report Type: 
  Country: None (occurrence: None)
  Receive Date: 20070423
  Receipt Date: 20070423
  Transmission Date: 20071010
  Serious: Yes (Other)
  Sender: FDA-Public Use
  Company Number: None

PATIENT
  Age: 41 Year
  Sex: Female
  Weight: 95.2554 kg

DRUGS (1)
  1. AVELOX [Suspect]
     Indication: BRONCHITIS
     Dosage: 400 MG 1 TIME PER DAY PO
     Route: 048
     Dates: start: 20070131, end: 20070208

REACTIONS (11)
  - ANXIETY [None]
  - BLOOD PRESSURE INCREASED [None]
  - DISORIENTATION [None]
  - DIZZINESS [None]
  - HEART RATE INCREASED [None]
  - INSOMNIA [None]
  - MOVEMENT DISORDER [None]
  - MUSCLE TWITCHING [None]
  - MUSCULAR WEAKNESS [None]
  - PANIC ATTACK [None]
  - TREMOR [None]
